FAERS Safety Report 7470482-X (Version None)
Quarter: 2011Q2

REPORT INFORMATION
  Report Type: 
  Country: None (occurrence: None)
  Receive Date: 20110510
  Receipt Date: 20110504
  Transmission Date: 20111010
  Serious: Yes (Death, Hospitalization)
  Sender: FDA-Public Use
  Company Number: US-MERCK-1101USA02185

PATIENT
  Age: 63 Year
  Sex: Male

DRUGS (18)
  1. FLOMAX [Concomitant]
     Route: 065
     Dates: start: 20100126
  2. SENNA [Concomitant]
     Route: 065
     Dates: start: 20090203
  3. VITAMIN D (UNSPECIFIED) [Concomitant]
     Route: 065
     Dates: start: 20090218
  4. PROCRIT [Concomitant]
     Route: 058
     Dates: start: 20100714
  5. AMLODIPINE [Concomitant]
     Route: 065
     Dates: start: 20090508
  6. FEXOFENADINE HYDROCHLORIDE [Concomitant]
     Route: 065
     Dates: start: 20080429
  7. ZOLINZA [Suspect]
     Indication: MYCOSIS FUNGOIDES
     Route: 048
     Dates: start: 20080501, end: 20101011
  8. ASPIRIN [Concomitant]
     Route: 065
     Dates: start: 20031207
  9. OMEPRAZOLE [Concomitant]
     Route: 065
     Dates: start: 20090218
  10. CRESTOR [Concomitant]
     Route: 065
     Dates: start: 20080923
  11. METOPROLOL TARTRATE [Concomitant]
     Route: 065
     Dates: start: 20090527
  12. RENVELA [Concomitant]
     Route: 065
     Dates: start: 20090527
  13. TORSEMIDE [Concomitant]
     Route: 065
     Dates: start: 20070823
  14. AMLODIPINE [Concomitant]
     Route: 065
     Dates: start: 20100401
  15. HUMALOG [Concomitant]
     Dosage: BEFORE MEALS.
     Route: 065
     Dates: start: 20090508
  16. HYDROXYZINE HYDROCHLORIDE [Concomitant]
     Route: 065
     Dates: start: 20041222
  17. LANTUS [Concomitant]
     Route: 051
     Dates: start: 20031207
  18. SERTRALINE HYDROCHLORIDE [Concomitant]
     Route: 065
     Dates: start: 20090223

REACTIONS (3)
  - CEREBRAL DISORDER [None]
  - UNDERDOSE [None]
  - SKIN ULCER [None]
